FAERS Safety Report 14425545 (Version 15)
Quarter: 2025Q4

REPORT INFORMATION
  Report Type: Spontaneous
  Country: EU (occurrence: EU)
  Receive Date: 20180123
  Receipt Date: 20251006
  Transmission Date: 20260117
  Serious: Yes (Hospitalization)
  Sender: NOVARTIS
  Company Number: PHHY2018ES000491

PATIENT
  Age: 79 Year
  Sex: Male

DRUGS (14)
  1. DAPSONE [Suspect]
     Active Substance: DAPSONE
     Indication: Type 2 lepra reaction
     Dosage: 100 MG, QD
     Route: 065
  2. MYFORTIC [Suspect]
     Active Substance: MYCOPHENOLATE SODIUM
     Indication: Glomerulonephritis proliferative
     Dosage: 360 MG, Q12H
     Route: 065
     Dates: start: 201105, end: 201106
  3. MYCOPHENOLATE SODIUM [Suspect]
     Active Substance: MYCOPHENOLATE SODIUM
     Indication: Glomerulonephritis proliferative
     Dosage: 360 MG, Q12H
     Route: 065
     Dates: start: 20110501, end: 20110601
  4. MYCOPHENOLATE SODIUM [Suspect]
     Active Substance: MYCOPHENOLATE SODIUM
     Indication: Product used for unknown indication
     Dosage: 720 MG, QD (360 MG, BID)
     Route: 065
     Dates: start: 20110501, end: 20110601
  5. METHYLPREDNISOLONE [Suspect]
     Active Substance: METHYLPREDNISOLONE
     Indication: Glomerulonephritis proliferative
     Dosage: PROGRESSIVELY DECREASING DOSE
     Route: 065
  6. METHYLPREDNISOLONE [Suspect]
     Active Substance: METHYLPREDNISOLONE
     Dosage: 3 DF THREE BOLUSES/THREE BOLUSES (500 MG)
     Route: 065
     Dates: start: 20110330
  7. METHYLPREDNISOLONE [Suspect]
     Active Substance: METHYLPREDNISOLONE
     Dosage: UNK (3 BOLUS)
     Route: 042
  8. CYCLOPHOSPHAMIDE [Suspect]
     Active Substance: CYCLOPHOSPHAMIDE
     Indication: Glomerulonephritis proliferative
     Dosage: 100 MG, QD
     Route: 048
     Dates: start: 20110101, end: 20110517
  9. PREDNISONE [Suspect]
     Active Substance: PREDNISONE
     Indication: Glomerulonephritis proliferative
     Dosage: 60 MG, QD (GRADUAL DOSE REDUCTION)
     Route: 065
     Dates: start: 2011
  10. PREDNISONE [Suspect]
     Active Substance: PREDNISONE
     Dosage: UNK
     Route: 065
     Dates: start: 201106
  11. PREDNISONE [Suspect]
     Active Substance: PREDNISONE
     Dosage: 70 MG, QD
     Route: 065
     Dates: start: 20110311
  12. PREDNISONE [Suspect]
     Active Substance: PREDNISONE
     Dosage: UNK (3 BOLUSES  )
     Route: 065
  13. CLOFAZIMINE [Concomitant]
     Active Substance: CLOFAZIMINE
     Indication: Type 2 lepra reaction
     Dosage: 50 MG, QD
     Route: 065
  14. RIFAMPIN [Concomitant]
     Active Substance: RIFAMPIN
     Indication: Type 2 lepra reaction
     Dosage: 300 MG, QMO
     Route: 065

REACTIONS (2)
  - Pneumonia [Unknown]
  - Haemolytic anaemia [Unknown]

NARRATIVE: CASE EVENT DATE: 20110601
